FAERS Safety Report 8864254 (Version 1)
Quarter: 2012Q4

REPORT INFORMATION
  Report Type: 
  Country: US (occurrence: US)
  Receive Date: 20121024
  Receipt Date: 20121024
  Transmission Date: 20130627
  Serious: No
  Sender: FDA-Public Use
  Company Number: US-AMGEN-USASP2011066326

PATIENT
  Sex: Female

DRUGS (7)
  1. ENBREL [Suspect]
     Indication: PRODUCT USED FOR UNKNOWN INDICATION
     Dosage: 50 mg, qwk
     Route: 058
  2. METHOTREXATE [Concomitant]
  3. NAPROXEN [Concomitant]
  4. PREDNISONE [Concomitant]
     Dosage: 1 mg, UNK
     Route: 048
  5. ASPIRIN [Concomitant]
     Dosage: 81 mg, UNK
     Route: 048
  6. PRENATAL                           /00231801/ [Concomitant]
     Route: 048
  7. PLAQUENIL                          /00072603/ [Concomitant]
     Dosage: 200 mg, UNK
     Route: 048

REACTIONS (3)
  - Bone pain [Unknown]
  - Injection site pain [Unknown]
  - Rash [Unknown]
